FAERS Safety Report 4544738-4 (Version None)
Quarter: 2004Q4

REPORT INFORMATION
  Report Type: 
  Country: None (occurrence: None)
  Receive Date: 20041230
  Receipt Date: 20041216
  Transmission Date: 20050328
  Serious: Yes (Other)
  Sender: FDA-Public Use
  Company Number: 2004116981

PATIENT
  Age: 28 Year
  Sex: Male
  Weight: 100 kg

DRUGS (4)
  1. LINEZOLID SOLUTION, STERILE (LINEZOLID) [Suspect]
     Indication: PNEUMONIA STAPHYLOCOCCAL
     Dosage: 1.2 GRAM (DAILY)
     Dates: start: 20041126, end: 20041213
  2. CLONIDINE [Concomitant]
  3. PROPOFOL [Concomitant]
  4. IMMUNOGLOBULINS (IMMUNOGLOBULINS) [Concomitant]

REACTIONS (5)
  - AZOTAEMIA [None]
  - CREATININE RENAL CLEARANCE INCREASED [None]
  - ELECTROLYTE IMBALANCE [None]
  - POLYURIA [None]
  - URINE ANALYSIS ABNORMAL [None]
